FAERS Safety Report 10063025 (Version 3)
Quarter: 2015Q2

REPORT INFORMATION
  Report Type: Spontaneous
  Country: US (occurrence: US)
  Receive Date: 20140407
  Receipt Date: 20150519
  Transmission Date: 20150821
  Serious: Yes (Death, Life-Threatening, Hospitalization, Other)
  Sender: FDA-Public Use
  Company Number: US-009507513-1404USA003574

PATIENT
  Sex: Male
  Weight: 85.26 kg

DRUGS (6)
  1. LOSARTAN POTASSIUM. [Concomitant]
     Active Substance: LOSARTAN POTASSIUM
     Dosage: 25 MG, UNK
     Route: 048
     Dates: start: 20130906
  2. OMEPRAZOLE. [Concomitant]
     Active Substance: OMEPRAZOLE
     Dosage: 20 MG, UNK
     Route: 048
     Dates: start: 20130906
  3. CLOPIDOGREL BISULFATE. [Concomitant]
     Active Substance: CLOPIDOGREL BISULFATE
     Dosage: 75 MG, UNK
     Route: 048
     Dates: start: 20130906
  4. CARVEDILOL. [Concomitant]
     Active Substance: CARVEDILOL
     Dosage: 6.25 MG, UNK
     Route: 048
     Dates: start: 20130906
  5. JANUMET [Suspect]
     Active Substance: METFORMIN HYDROCHLORIDE\SITAGLIPTIN PHOSPHATE
     Indication: TYPE 2 DIABETES MELLITUS
     Dosage: 50/1000 MG, BID
     Route: 048
     Dates: start: 20070315
  6. SIMVASTATIN. [Concomitant]
     Active Substance: SIMVASTATIN
     Dosage: 40 MG, UNK
     Route: 048
     Dates: start: 20130906

REACTIONS (19)
  - Stent placement [Unknown]
  - Stent placement [Unknown]
  - Cardiac disorder [Unknown]
  - Pancreatic carcinoma metastatic [Unknown]
  - Dyspnoea [Unknown]
  - Polydipsia [Unknown]
  - Coronary artery disease [Unknown]
  - Myalgia [Unknown]
  - Laparoscopy [Unknown]
  - Arteriosclerosis coronary artery [Unknown]
  - Anxiety [Unknown]
  - Death [Fatal]
  - Chest pain [Unknown]
  - Coronary artery bypass [Unknown]
  - Cholelithiasis [Unknown]
  - Coronary angioplasty [Unknown]
  - Metastases to liver [Unknown]
  - Hyperlipidaemia [Unknown]
  - Sleep disorder [Unknown]

NARRATIVE: CASE EVENT DATE: 20130906
